FAERS Safety Report 11615347 (Version 1)
Quarter: 2015Q4

REPORT INFORMATION
  Report Type: Spontaneous
  Country: US (occurrence: None)
  Receive Date: 20151008
  Receipt Date: 20151008
  Transmission Date: 20160304
  Serious: Yes (Other)
  Sender: FDA-Public Use
  Company Number: None

PATIENT
  Sex: Male

DRUGS (8)
  1. METAFORMIN [Concomitant]
  2. RESERVATROL [Concomitant]
  3. INSULIN [Concomitant]
     Active Substance: INSULIN NOS
  4. PANTAPRAZOLE [Concomitant]
  5. IMPROZOL [Concomitant]
  6. LISINOPRIL. [Concomitant]
     Active Substance: LISINOPRIL
  7. ZYTIGA [Suspect]
     Active Substance: ABIRATERONE ACETATE
     Indication: PROSTATE CANCER
     Dosage: 250 MG  1000 MG ONCE DAILY ORAL
     Route: 048
     Dates: start: 20141022
  8. OMEGA PLUS [Concomitant]

REACTIONS (1)
  - Cerebrovascular accident [None]
